FAERS Safety Report 7047646-2 (Version None)
Quarter: 2010Q4

REPORT INFORMATION
  Report Type: 
  Country: None (occurrence: None)
  Receive Date: 20101014
  Receipt Date: 20101014
  Transmission Date: 20110411
  Serious: Yes (Other)
  Sender: FDA-Public Use
  Company Number: None

PATIENT
  Age: 30 Year
  Sex: Male
  Weight: 72.5755 kg

DRUGS (4)
  1. OXYCONTIN [Suspect]
     Indication: KYPHOSIS
     Dosage: 40MG 3 TIMES DAILY PO
     Route: 048
     Dates: start: 20100911, end: 20101011
  2. OXYCONTIN [Suspect]
     Indication: OSTEOARTHRITIS
     Dosage: 40MG 3 TIMES DAILY PO
     Route: 048
     Dates: start: 20100911, end: 20101011
  3. OXYCONTIN [Suspect]
     Indication: SCOLIOSIS
     Dosage: 40MG 3 TIMES DAILY PO
     Route: 048
     Dates: start: 20100911, end: 20101011
  4. OXYCONTIN [Suspect]
     Indication: SPINAL DEFORMITY
     Dosage: 40MG 3 TIMES DAILY PO
     Route: 048
     Dates: start: 20100911, end: 20101011

REACTIONS (3)
  - ABDOMINAL DISTENSION [None]
  - PRODUCT QUALITY ISSUE [None]
  - WITHDRAWAL SYNDROME [None]
